FAERS Safety Report 7313791-7 (Version None)
Quarter: 2011Q1

REPORT INFORMATION
  Report Type: 
  Country: None (occurrence: None)
  Receive Date: 20110225
  Receipt Date: 20110216
  Transmission Date: 20110831
  Serious: Yes (Hospitalization)
  Sender: FDA-Public Use
  Company Number: JP-PFIZER INC-2011032755

PATIENT
  Age: 93 Year
  Sex: Female

DRUGS (1)
  1. LYRICA [Suspect]
     Indication: INTERCOSTAL NEURALGIA
     Dosage: 150 MG, DAILY

REACTIONS (2)
  - FALL [None]
  - BLOOD CREATINE PHOSPHOKINASE INCREASED [None]
